FAERS Safety Report 12183165 (Version 1)
Quarter: 2016Q1

REPORT INFORMATION
  Report Type: Spontaneous
  Country: JP (occurrence: JP)
  Receive Date: 20160316
  Receipt Date: 20160316
  Transmission Date: 20160526
  Serious: Yes (Other)
  Sender: FDA-Public Use
  Company Number: JP-SA-2016SA049928

PATIENT
  Sex: Male

DRUGS (2)
  1. THYROGEN [Suspect]
     Active Substance: THYROTROPIN ALFA
     Indication: THERAPEUTIC PROCEDURE
     Route: 030
  2. IODINE (131 I) [Suspect]
     Active Substance: SODIUM IODIDE I-131
     Indication: THYROID CANCER
     Route: 065

REACTIONS (8)
  - Laryngeal oedema [Recovered/Resolved]
  - Lymphadenopathy [Recovered/Resolved]
  - Obstructive airways disorder [Recovered/Resolved]
  - Neck pain [Recovered/Resolved]
  - Respiratory failure [Recovered/Resolved]
  - Wheezing [Recovered/Resolved]
  - Oxygen saturation decreased [Recovered/Resolved]
  - Dysphagia [Recovered/Resolved]
